FAERS Safety Report 13742542 (Version 1)
Quarter: 2017Q3

REPORT INFORMATION
  Report Type: Spontaneous
  Country: ES (occurrence: ES)
  Receive Date: 20170711
  Receipt Date: 20170711
  Transmission Date: 20171127
  Serious: Yes (Hospitalization)
  Sender: FDA-Public Use
  Company Number: ES-DSJP-DSE-2017-123834

PATIENT

DRUGS (2)
  1. CAPENON HCT 40 MG/5 MG/25 MG [Suspect]
     Active Substance: AMLODIPINE BESYLATE\HYDROCHLOROTHIAZIDE\OLMESARTAN MEDOXOMIL
     Indication: HYPERTENSION
  2. CARDURAN NEO [Concomitant]
     Active Substance: DOXAZOSIN MESYLATE
     Indication: HYPERTENSION

REACTIONS (1)
  - Acute hepatic failure [Unknown]

NARRATIVE: CASE EVENT DATE: 201703
